FAERS Safety Report 8478743-2 (Version None)
Quarter: 2012Q2

REPORT INFORMATION
  Report Type: 
  Country: None (occurrence: None)
  Receive Date: 20120629
  Receipt Date: 20120619
  Transmission Date: 20120825
  Serious: Yes (Hospitalization)
  Sender: FDA-Public Use
  Company Number: US-JNJFOC-20120601751

PATIENT
  Sex: Male
  Weight: 70.31 kg

DRUGS (4)
  1. IMODIUM [Concomitant]
  2. REMICADE [Suspect]
     Indication: CROHN'S DISEASE
     Route: 042
     Dates: start: 20070208
  3. APRISO [Concomitant]
  4. CIMZIA [Concomitant]
     Dates: start: 20100514

REACTIONS (1)
  - CROHN'S DISEASE [None]
